FAERS Safety Report 18768255 (Version 2)
Quarter: 2021Q1

REPORT INFORMATION
  Report Type: Spontaneous
  Country: JP (occurrence: JP)
  Receive Date: 20210121
  Receipt Date: 20210225
  Transmission Date: 20210419
  Serious: Yes (Hospitalization, Other)
  Sender: FDA-Public Use
  Company Number: JP-ASTRAZENECA-2020SE88605

PATIENT
  Age: 26718 Day
  Sex: Male
  Weight: 68 kg

DRUGS (25)
  1. CALONAL [Concomitant]
     Active Substance: ACETAMINOPHEN
     Dosage: 400 MG, AS INSTRUCTED BY PHYSICIAN
     Route: 048
     Dates: start: 20200420
  2. SENNOSIDE [Concomitant]
     Active Substance: SENNOSIDES
     Indication: CONSTIPATION
     Dosage: 12 MG, IN CASE OF CONSTIPATION
     Route: 048
     Dates: start: 20200420
  3. PRIMPERAN [Concomitant]
     Active Substance: METOCLOPRAMIDE HYDROCHLORIDE
     Indication: NAUSEA
     Dosage: 5 MG, IN CASE OF QUEASY
     Route: 048
     Dates: start: 20200427
  4. MAGNESIUM OXIDE. [Concomitant]
     Active Substance: MAGNESIUM OXIDE
     Indication: CONSTIPATION
     Dosage: 300 MG, IN CASE OF CONSTIPATION
     Route: 048
     Dates: start: 20200423
  5. SYMPROIC [Concomitant]
     Active Substance: NALDEMEDINE
     Dosage: 0.2 MG DAILY, AFTER BREAKFAST
     Route: 048
     Dates: start: 20200416, end: 20200524
  6. CALONAL [Concomitant]
     Active Substance: ACETAMINOPHEN
     Dosage: 500 MG FOUR TIMES A DAY, BEFORE BREAKFAST, LUNCH, EVENING MEAL AND BEDTIME
     Route: 048
     Dates: start: 20200615
  7. TRAZODONE HYDROCHLORIDE. [Concomitant]
     Active Substance: TRAZODONE HYDROCHLORIDE
     Indication: INSOMNIA
     Dosage: 25 MG, IN CASE OF SLEEPLESSNESS
     Route: 048
     Dates: start: 20200420
  8. TAKEPRON [Concomitant]
     Active Substance: LANSOPRAZOLE
     Dosage: 30 MG DAILY, AFTER EVENING MEAL
     Route: 048
     Dates: start: 20200615
  9. CANDESARTAN. [Concomitant]
     Active Substance: CANDESARTAN
     Route: 048
  10. LOXONIN [Suspect]
     Active Substance: LOXOPROFEN SODIUM
     Indication: PYREXIA
     Dosage: 60 MG, IN CASE OF PYREXIA OR PAIN
     Route: 048
     Dates: start: 20200622
  11. LOXOPROFEN NA [Concomitant]
     Active Substance: LOXOPROFEN SODIUM
     Indication: PYREXIA
     Dosage: 60 MG, IN CASE OF PYREXIA OR PAIN
     Route: 048
     Dates: start: 20200401
  12. MOHRUS TAPE:L [Concomitant]
     Dosage: 4 DF DAILY, NUMBER OF SEPARATE DOSAGES UNKNOWN. SITE: CHEST
     Route: 062
     Dates: start: 20200401
  13. OXYCONTIN TR [Concomitant]
     Active Substance: OXYCODONE HYDROCHLORIDE
     Dosage: 5 MG BID, AFTER BREAKFAST AND EVENING MEAL
     Route: 048
     Dates: start: 20200416
  14. REBAMIPIDE [Concomitant]
     Active Substance: REBAMIPIDE
     Dosage: 100 MG THREE TIMES A DAY, AFTER BREAKFAST, LUNCH AND EVENING MEAL
     Route: 048
     Dates: start: 20200615
  15. OXINORM [Concomitant]
     Indication: PAIN
     Dosage: 5 MG, IN CASE OF PAIN
     Route: 048
     Dates: start: 20200416
  16. LOXOPROFEN NA [Concomitant]
     Active Substance: LOXOPROFEN SODIUM
     Indication: PAIN
     Dosage: 60 MG, IN CASE OF PYREXIA OR PAIN
     Route: 048
     Dates: start: 20200401
  17. RESTAMIN [Concomitant]
     Active Substance: DIPHENHYDRAMINE
     Dosage: DOSE UNKNOWN, SEVERAL TIMES DAILY. SITE: BACK.
     Route: 062
     Dates: start: 20200423
  18. MAGNESIUM OXIDE. [Concomitant]
     Active Substance: MAGNESIUM OXIDE
     Indication: CONSTIPATION
     Dosage: 250 MG THREE TIMES A DAY, AFTER BREAKFAST, LUNCH AND EVENING MEAL
     Route: 048
     Dates: start: 20200430
  19. TAGRISSO [Suspect]
     Active Substance: OSIMERTINIB
     Indication: NON-SMALL CELL LUNG CANCER
     Dosage: AFTER BREAKFAST
     Route: 048
     Dates: start: 20200422, end: 20200621
  20. LOXONIN [Suspect]
     Active Substance: LOXOPROFEN SODIUM
     Indication: PYREXIA
     Route: 048
     Dates: start: 20200525, end: 20200614
  21. HIRUDOID [Concomitant]
     Active Substance: GLYCOSAMINOGLYCANS
     Dosage: DOSE UNKNOWN, SEVERAL TIMES DAILY. SITE: BACK
     Route: 062
     Dates: start: 20200422
  22. MIYA?BM [Concomitant]
     Active Substance: CLOSTRIDIUM BUTYRICUM SPORES STRAIN M-55
     Dosage: 20 MG THREE TIMES A DAY, AFTER BREAKFAST, LUNCH AND EVENING MEAL
     Route: 048
     Dates: start: 20200511
  23. LOPERAMIDE HYDROCHLORIDE. [Concomitant]
     Active Substance: LOPERAMIDE HYDROCHLORIDE
     Indication: DIARRHOEA
     Dosage: 1 MG, IN CASE OF DIARRHOEA
     Route: 048
     Dates: start: 20200511
  24. BESOFTEN [Concomitant]
     Active Substance: PENTOSAN POLYSULFATE SODIUM
     Dosage: DOSE UNKNOWN. SITE: BODY, FOUR LIMBS, TWICE A DAY
     Route: 062
     Dates: start: 20200511
  25. SILODOSIN OD [Concomitant]
     Route: 048

REACTIONS (7)
  - Interstitial lung disease [Recovering/Resolving]
  - Brain neoplasm [Not Recovered/Not Resolved]
  - Nausea [Recovered/Resolved]
  - Decreased appetite [Not Recovered/Not Resolved]
  - Taste disorder [Not Recovered/Not Resolved]
  - Gastritis [Recovered/Resolved]
  - Diarrhoea [Recovered/Resolved]

NARRATIVE: CASE EVENT DATE: 20200525
